FAERS Safety Report 8462043-0 (Version None)
Quarter: 2012Q2

REPORT INFORMATION
  Report Type: 
  Country: None (occurrence: None)
  Receive Date: 20120625
  Receipt Date: 20120619
  Transmission Date: 20120825
  Serious: Yes (Hospitalization, Other)
  Sender: FDA-Public Use
  Company Number: US-PFIZER INC-2012148522

PATIENT
  Sex: Female
  Weight: 90.703 kg

DRUGS (6)
  1. NEURONTIN [Suspect]
     Indication: HYPOAESTHESIA
     Dosage: 300 MG, 3X/DAY
  2. HYDROCHLOROTHIAZIDE [Concomitant]
     Indication: DIURETIC THERAPY
     Dosage: UNK
  3. PROPRANOLOL [Concomitant]
     Indication: HYPERTENSION
     Dosage: 40 MG, 2X/DAY
  4. LOSARTAN [Concomitant]
     Dosage: 150MG (ONE AND HALF TABLET OF 100MG), DAILY
  5. LIPITOR [Suspect]
     Dosage: 40 MG, DAILY
  6. BENAZEPRIL [Concomitant]
     Dosage: UNK
     Dates: end: 20120101

REACTIONS (5)
  - INFLUENZA [None]
  - VOMITING [None]
  - BODY TEMPERATURE INCREASED [None]
  - ARTHRITIS INFECTIVE [None]
  - WOUND SECRETION [None]
